FAERS Safety Report 10031287 (Version 1)
Quarter: 2014Q1

REPORT INFORMATION
  Report Type: Spontaneous
  Country: US (occurrence: US)
  Receive Date: 20140324
  Receipt Date: 20140324
  Transmission Date: 20141002
  Serious: No
  Sender: FDA-Public Use
  Company Number: US-009507513-1403USA004100

PATIENT
  Sex: Male

DRUGS (3)
  1. REBETOL [Suspect]
     Indication: HEPATITIS C
     Dosage: 600 MG, AM AND PMTWICE A DAY (BID)
     Route: 048
     Dates: start: 20140218
  2. PEGINTRON [Suspect]
     Indication: HEPATITIS C
     Dosage: ONCE A WEEK (QW)
     Route: 058
     Dates: start: 20140218
  3. SOVALDI [Concomitant]
     Dosage: 1 DF, QD

REACTIONS (1)
  - Nausea [Unknown]
